FAERS Safety Report 14056953 (Version 3)
Quarter: 2018Q1

REPORT INFORMATION
  Report Type: Spontaneous
  Country: DE (occurrence: DE)
  Receive Date: 20171006
  Receipt Date: 20180115
  Transmission Date: 20180508
  Serious: Yes (Death, Other)
  Sender: FDA-Public Use
  Company Number: DE-009507513-1710DEU001677

PATIENT
  Sex: Male
  Weight: 85 kg

DRUGS (1)
  1. ZERBAXA [Suspect]
     Active Substance: CEFTOLOZANE SULFATE\TAZOBACTAM SODIUM
     Indication: CHOLECYSTITIS INFECTIVE
     Dosage: UNK

REACTIONS (1)
  - Death [Fatal]
